FAERS Safety Report 26023609 (Version 1)
Quarter: 2025Q4

REPORT INFORMATION
  Report Type: Spontaneous
  Country: US (occurrence: US)
  Receive Date: 20251111
  Receipt Date: 20251111
  Transmission Date: 20260117
  Serious: Yes (Other)
  Sender: SANOFI AVENTIS
  Company Number: US-SANOFI-02714844

PATIENT

DRUGS (1)
  1. DUPIXENT [Suspect]
     Active Substance: DUPILUMAB
     Indication: Dermatitis atopic
     Dosage: UNK

REACTIONS (6)
  - Ichthyosis [Unknown]
  - Alopecia [Unknown]
  - Inflammation [Unknown]
  - Depression [Unknown]
  - Skin exfoliation [Recovered/Resolved]
  - Drug ineffective [Unknown]
